FAERS Safety Report 8843556 (Version 1)
Quarter: 2012Q4

REPORT INFORMATION
  Report Type: 
  Country: IT (occurrence: IT)
  Receive Date: 20121016
  Receipt Date: 20121016
  Transmission Date: 20130627
  Serious: Yes (Hospitalization, Other)
  Sender: FDA-Public Use
  Company Number: PHHY2012IT090237

PATIENT
  Age: 48 Year
  Sex: Female

DRUGS (4)
  1. DIAZEPAM [Suspect]
     Indication: SUICIDE ATTEMPT
     Dosage: 20 ml
     Route: 048
     Dates: start: 20121004, end: 20121004
  2. OMEPRAZOLE [Suspect]
     Indication: SUICIDE ATTEMPT
     Dosage: 14 DF
     Route: 048
     Dates: start: 20121004, end: 20121004
  3. POTASSIUM CHLORIDE [Suspect]
     Indication: SUICIDE ATTEMPT
     Dosage: 6 DF
     Route: 048
     Dates: start: 20121004, end: 20121004
  4. ASPARGIN [Suspect]
     Indication: SUICIDE ATTEMPT
     Dosage: 7500 mg
     Route: 048
     Dates: start: 20121004, end: 20121004

REACTIONS (7)
  - Suicide attempt [Recovered/Resolved]
  - Tachycardia [Recovered/Resolved]
  - Hypokinesia [Recovered/Resolved]
  - Speech disorder [Recovered/Resolved]
  - Bradyphrenia [Recovered/Resolved]
  - Blood pressure decreased [Recovered/Resolved]
  - Intentional overdose [Recovered/Resolved]
